FAERS Safety Report 6278194-5 (Version None)
Quarter: 2009Q3

REPORT INFORMATION
  Report Type: 
  Country: None (occurrence: None)
  Receive Date: 20090722
  Receipt Date: 20090713
  Transmission Date: 20100115
  Serious: Yes (Other)
  Sender: FDA-Public Use
  Company Number: US-PFIZER INC-2009240585

PATIENT
  Sex: Female

DRUGS (2)
  1. LYRICA [Suspect]
     Dates: start: 20080101
  2. METFORMIN HCL [Suspect]
     Indication: DIABETES MELLITUS
     Dates: start: 20090101

REACTIONS (2)
  - DIABETES MELLITUS [None]
  - RASH [None]
